FAERS Safety Report 9123105 (Version 1)
Quarter: 2013Q1

REPORT INFORMATION
  Report Type: Spontaneous
  Country: US (occurrence: None)
  Receive Date: 20130225
  Receipt Date: 20130225
  Transmission Date: 20140127
  Serious: Yes (Other)
  Sender: FDA-Public Use
  Company Number: None

PATIENT
  Sex: Male
  Weight: 40.37 kg

DRUGS (1)
  1. OXCARBAZEPINE [Suspect]
     Indication: CONVULSION
     Dosage: 2 TSP BID PO?SINGLE DOSE
     Route: 048
     Dates: start: 20130215, end: 20130215

REACTIONS (7)
  - Vomiting [None]
  - Retching [None]
  - Diarrhoea [None]
  - Product taste abnormal [None]
  - Product odour abnormal [None]
  - Product substitution issue [None]
  - Product physical issue [None]
